FAERS Safety Report 7407528 (Version 2)
Quarter: 2013Q2

REPORT INFORMATION
  Report Type: Spontaneous
  Country: IT (occurrence: None)
  Receive Date: 20100526
  Receipt Date: 20130403
  Transmission Date: 20140414
  Serious: Yes (Other)
  Sender: FDA-Public Use
  Company Number: 011897

PATIENT
  Age: 2 Month
  Sex: Male

DRUGS (1)
  1. BUSULFEX (BUSULFAN) INJECTION [Suspect]
     Indication: EPILEPSY
     Route: 042

REACTIONS (3)
  - SUDDEN DEATH [None]
  - Thrombocytopenia [None]
  - Neutropenia [None]
